FAERS Safety Report 7995644-4 (Version None)
Quarter: 2011Q4

REPORT INFORMATION
  Report Type: 
  Country: None (occurrence: None)
  Receive Date: 20111220
  Receipt Date: 20111212
  Transmission Date: 20120403
  Serious: Yes (Other)
  Sender: FDA-Public Use
  Company Number: AR-ELI_LILLY_AND_COMPANY-AR201111004635

PATIENT
  Age: 61 Year
  Sex: Male
  Weight: 77 kg

DRUGS (4)
  1. DULOXETINE HYDROCHLORIDE [Suspect]
     Indication: FIBROMYALGIA
     Dosage: 30 MG, UNK
     Dates: start: 20080101
  2. PERINDOPRIL ARGININE [Concomitant]
  3. LANSOPRAZOLE [Concomitant]
  4. MIGRAL [Concomitant]
     Dosage: 500 MG, 3/W

REACTIONS (3)
  - STRABISMUS [None]
  - CONVULSION [None]
  - CRANIAL NERVE PARALYSIS [None]
